FAERS Safety Report 19701989 (Version 1)
Quarter: 2021Q3

REPORT INFORMATION
  Report Type: Spontaneous
  Country: US (occurrence: US)
  Receive Date: 20210813
  Receipt Date: 20210813
  Transmission Date: 20211014
  Serious: Yes (Other)
  Sender: FDA-Public Use
  Company Number: US-SUNOVION-2021SUN003077

PATIENT
  Sex: Female
  Weight: 88 kg

DRUGS (12)
  1. DEPAKOTE [Suspect]
     Active Substance: DIVALPROEX SODIUM
     Dosage: 250 MG, QD, 2?3 TABLETS  EVERY EVENING
     Route: 048
     Dates: start: 20210211
  2. NORCO [Concomitant]
     Active Substance: ACETAMINOPHEN\HYDROCODONE BITARTRATE
     Dosage: 5 MG?325 MG, QID
     Route: 048
     Dates: start: 20200519
  3. LATUDA [Suspect]
     Active Substance: LURASIDONE HYDROCHLORIDE
     Dosage: 120 MG, QD EVERY EVENING
     Route: 048
     Dates: start: 20210325
  4. CLONAZEPAM. [Concomitant]
     Active Substance: CLONAZEPAM
     Dosage: 1 MG, 0.5 TO 1 TAB, 1 TO 2 TIMES DAILY
     Route: 048
     Dates: start: 20210211
  5. ALBUTEROL SULFATE HFA [Concomitant]
     Active Substance: ALBUTEROL SULFATE
     Dosage: 2.5 MG/ 3 ML AS NEEDED
     Route: 055
     Dates: start: 20180712
  6. PROPRANOLOL/HCTZ [Concomitant]
     Dosage: 20 MG EVERY 4?6 HOURS
     Route: 048
     Dates: start: 20210211
  7. GABAPENTIN. [Concomitant]
     Active Substance: GABAPENTIN
     Dosage: 800 MG, 3 TIMES DAILY
     Route: 048
     Dates: start: 20200519
  8. POTASSIUM CHLORIDE. [Concomitant]
     Active Substance: POTASSIUM CHLORIDE
     Dosage: 10 MEQ, QW
     Route: 048
     Dates: start: 20180712
  9. LATUDA [Suspect]
     Active Substance: LURASIDONE HYDROCHLORIDE
     Dosage: 120 MG, QD EVERY EVENING
     Route: 048
     Dates: start: 20210211
  10. PROPRANOLOL/HCTZ [Concomitant]
     Dosage: 20 MG, EVERY 4 TO 6 HOURS
     Route: 048
     Dates: start: 20200602
  11. PROAIR HFA [Concomitant]
     Active Substance: ALBUTEROL SULFATE
     Dosage: 90 ?G, 1?2 PUFFS AS NEEDED
     Route: 055
     Dates: start: 20180705
  12. LATUDA [Suspect]
     Active Substance: LURASIDONE HYDROCHLORIDE
     Dosage: 120 MG, QD EVERY EVENING
     Route: 048
     Dates: start: 20200923

REACTIONS (20)
  - Hepatic neoplasm [Unknown]
  - Post-traumatic stress disorder [Unknown]
  - Impaired reasoning [Unknown]
  - Weight decreased [Unknown]
  - Bipolar disorder [Unknown]
  - Sleep apnoea syndrome [Unknown]
  - Increased appetite [Unknown]
  - Splenomegaly [Unknown]
  - Generalised anxiety disorder [Unknown]
  - Insomnia [Unknown]
  - Personality disorder [Unknown]
  - Fibromyalgia [Unknown]
  - Food craving [Unknown]
  - Pain [Unknown]
  - Disturbance in attention [Unknown]
  - Hepatomegaly [Unknown]
  - Depression [Unknown]
  - Weight increased [Unknown]
  - Panic disorder [Unknown]
  - Decreased appetite [Unknown]
